FAERS Safety Report 9292970 (Version 1)
Quarter: 2013Q2

REPORT INFORMATION
  Report Type: Report from Study
  Country: JP (occurrence: JP)
  Receive Date: 20130516
  Receipt Date: 20130516
  Transmission Date: 20140414
  Serious: Yes (Other)
  Sender: FDA-Public Use
  Company Number: JP-PFIZER INC-2013145182

PATIENT
  Age: 61 Year
  Sex: Male

DRUGS (1)
  1. PACLITAXEL [Suspect]
     Indication: LARGE CELL LUNG CANCER
     Dosage: UNK

REACTIONS (1)
  - Pulmonary toxicity [Recovering/Resolving]
